FAERS Safety Report 7068130-6 (Version None)
Quarter: 2010Q4

REPORT INFORMATION
  Report Type: 
  Country: None (occurrence: None)
  Receive Date: 20101028
  Receipt Date: 20101019
  Transmission Date: 20110411
  Serious: Yes (Death, Life-Threatening, Hospitalization)
  Sender: FDA-Public Use
  Company Number: PHHO2008DE00652

PATIENT
  Sex: Male
  Weight: 75 kg

DRUGS (5)
  1. SIMULECT [Suspect]
     Indication: LIVER TRANSPLANT
     Dosage: 20 MG, DAY 0
     Route: 042
     Dates: start: 20071215, end: 20071215
  2. SIMULECT [Suspect]
     Dosage: 20 MG, DAY 4
     Route: 042
     Dates: start: 20071220, end: 20071220
  3. NO TREATMENT RECEIVED NOMED [Suspect]
     Dosage: NO TREATMENT
  4. TACROLIMUS [Suspect]
     Indication: LIVER TRANSPLANT
     Dosage: 4 MG
     Route: 048
     Dates: start: 20071216, end: 20071218
  5. HYPNOTICS AND SEDATIVES [Suspect]

REACTIONS (10)
  - ENTEROCOCCAL SEPSIS [None]
  - FUNGAL PERITONITIS [None]
  - GASTROINTESTINAL HAEMORRHAGE [None]
  - HEPATIC FUNCTION ABNORMAL [None]
  - PANCREATITIS HAEMORRHAGIC [None]
  - PANCREATITIS NECROTISING [None]
  - POSTOPERATIVE ILEUS [None]
  - PROTHROMBIN TIME PROLONGED [None]
  - RENAL FAILURE ACUTE [None]
  - TRANSPLANT FAILURE [None]
